FAERS Safety Report 17921636 (Version 1)
Quarter: 2020Q2

REPORT INFORMATION
  Report Type: Spontaneous
  Country: CN (occurrence: CN)
  Receive Date: 20200622
  Receipt Date: 20200622
  Transmission Date: 20200714
  Serious: Yes (Other)
  Sender: FDA-Public Use
  Company Number: CN-BAYER-2020-110506

PATIENT
  Age: 72 Year
  Sex: Female

DRUGS (14)
  1. PIPERACILLIN AND TAZOBACTAM [Concomitant]
     Active Substance: PIPERACILLIN SODIUM\TAZOBACTAM SODIUM
     Indication: PNEUMONIA CHLAMYDIAL
  2. AZITHROMYCIN ANHYDROUS. [Concomitant]
     Active Substance: AZITHROMYCIN ANHYDROUS
     Indication: PNEUMONIA
     Dosage: UNK
     Dates: start: 20200414, end: 20200420
  3. TIGECYCLINE. [Concomitant]
     Active Substance: TIGECYCLINE
     Indication: PNEUMONIA
     Dosage: 100 MG, BID
     Dates: start: 20200405, end: 20200408
  4. AVELOX [Suspect]
     Active Substance: MOXIFLOXACIN HYDROCHLORIDE
     Indication: PNEUMONIA
     Dosage: 40 MG, QD
     Route: 042
     Dates: start: 20200331, end: 20200404
  5. DOXYCYCLINE. [Suspect]
     Active Substance: DOXYCYCLINE
     Indication: PNEUMONIA
     Dosage: 100 MG, BID
     Dates: start: 20200409, end: 20200413
  6. TIGECYCLINE. [Concomitant]
     Active Substance: TIGECYCLINE
     Indication: PNEUMONIA CHLAMYDIAL
  7. MEROPENEM. [Concomitant]
     Active Substance: MEROPENEM
     Indication: PNEUMONIA
  8. CEFOPERAZONE + SULBACTAM [Concomitant]
     Active Substance: CEFOPERAZONE SODIUM\SULBACTAM
     Indication: PNEUMONIA CHLAMYDIAL
  9. AVELOX [Suspect]
     Active Substance: MOXIFLOXACIN HYDROCHLORIDE
     Indication: PNEUMONIA CHLAMYDIAL
  10. DOXYCYCLINE. [Suspect]
     Active Substance: DOXYCYCLINE
     Indication: PNEUMONIA CHLAMYDIAL
  11. MEROPENEM. [Concomitant]
     Active Substance: MEROPENEM
     Indication: PNEUMONIA CHLAMYDIAL
     Dosage: 1.0, BID
     Dates: start: 20200409, end: 20200413
  12. PIPERACILLIN AND TAZOBACTAM [Concomitant]
     Active Substance: PIPERACILLIN SODIUM\TAZOBACTAM SODIUM
     Indication: PNEUMONIA
     Dosage: UNK
     Dates: start: 20200331, end: 20200404
  13. CEFOPERAZONE + SULBACTAM [Concomitant]
     Active Substance: CEFOPERAZONE SODIUM\SULBACTAM
     Indication: PNEUMONIA
     Dosage: UNK
     Dates: start: 20200414, end: 20200420
  14. AZITHROMYCIN ANHYDROUS. [Concomitant]
     Active Substance: AZITHROMYCIN ANHYDROUS
     Indication: PNEUMONIA CHLAMYDIAL

REACTIONS (13)
  - Renal impairment [None]
  - Drug ineffective [None]
  - Oxygen saturation abnormal [None]
  - Gastrointestinal haemorrhage [None]
  - Pulmonary embolism [None]
  - Tachypnoea [None]
  - Respiratory failure [None]
  - Lactic acidosis [None]
  - Pneumothorax [None]
  - Cerebral infarction [None]
  - Blood pressure decreased [None]
  - Haemothorax [None]
  - Jaundice [None]

NARRATIVE: CASE EVENT DATE: 202004
